FAERS Safety Report 25926121 (Version 1)
Quarter: 2025Q4

REPORT INFORMATION
  Report Type: Spontaneous
  Country: EU (occurrence: EU)
  Receive Date: 20251015
  Receipt Date: 20251015
  Transmission Date: 20260117
  Serious: Yes (Other)
  Sender: MYLAN
  Company Number: EU-009507513-2333318

PATIENT
  Age: 49 Year
  Sex: Female
  Weight: 55 kg

DRUGS (4)
  1. GEMCITABINE [Suspect]
     Active Substance: GEMCITABINE
     Indication: Cholangiocarcinoma
     Dosage: 1000 MILLIGRAM/SQ. METER (1000 MG/M2 D1, D15, 21/21 DAYS)
  2. PEMBROLIZUMAB [Suspect]
     Active Substance: PEMBROLIZUMAB
     Indication: Cholangiocarcinoma
     Dosage: 200 MILLIGRAM, Q21D (200MG, 21/21DAYS (30MIN))
     Dates: start: 202411
  3. CISPLATIN [Suspect]
     Active Substance: CISPLATIN
     Indication: Cholangiocarcinoma
     Dosage: 25 MILLIGRAM/SQ. METER (25MG/M? D1,D15, 21/21 DAYS)
  4. METHIMAZOLE [Concomitant]
     Active Substance: METHIMAZOLE
     Dosage: 5 MILLIGRAM, QD (5 MG DAILY)

REACTIONS (10)
  - Malignant neoplasm progression [Not Recovered/Not Resolved]
  - Neuropathy peripheral [Unknown]
  - Therapy partial responder [Unknown]
  - Influenza like illness [Unknown]
  - SARS-CoV-2 test positive [Unknown]
  - Catheter placement [Unknown]
  - Abdominal pain upper [Not Recovered/Not Resolved]
  - Hepatic pain [Not Recovered/Not Resolved]
  - Anaemia [Unknown]
  - Myalgia [Unknown]

NARRATIVE: CASE EVENT DATE: 20250101
